FAERS Safety Report 15278114 (Version 11)
Quarter: 2019Q1

REPORT INFORMATION
  Report Type: Spontaneous
  Country: US (occurrence: US)
  Receive Date: 20180814
  Receipt Date: 20190318
  Transmission Date: 20190417
  Serious: Yes (Hospitalization)
  Sender: FDA-Public Use
  Company Number: US-ACTELION-A-NJ2018-177181

PATIENT
  Age: 46 Year
  Sex: Female
  Weight: 67.57 kg

DRUGS (22)
  1. VELETRI [Suspect]
     Active Substance: EPOPROSTENOL
     Dosage: 5.79 NG/KG, PER MIN
     Route: 042
  2. VELETRI [Suspect]
     Active Substance: EPOPROSTENOL
     Indication: PULMONARY HYPERTENSION
     Dosage: 5.27 NG/KG, PER MIN
     Route: 042
  3. OMEPRAZOLE. [Concomitant]
     Active Substance: OMEPRAZOLE
  4. PREDNISONE. [Concomitant]
     Active Substance: PREDNISONE
  5. ZINC SULFATE [Concomitant]
     Active Substance: ZINC SULFATE\ZINC SULFATE ANHYDROUS
  6. FUROSEMIDE. [Concomitant]
     Active Substance: FUROSEMIDE
  7. LEVOTHYROXINE. [Concomitant]
     Active Substance: LEVOTHYROXINE
  8. ADEMPAS [Concomitant]
     Active Substance: RIOCIGUAT
  9. AMLODIPINE [Concomitant]
     Active Substance: AMLODIPINE BESYLATE
  10. ESCITALOPRAM [Concomitant]
     Active Substance: ESCITALOPRAM OXALATE
  11. METOPROLOL. [Concomitant]
     Active Substance: METOPROLOL
  12. POTASSIUM CHLORIDE. [Concomitant]
     Active Substance: POTASSIUM CHLORIDE
  13. APAP/CODEINE [Concomitant]
     Active Substance: ACETAMINOPHEN\CODEINE PHOSPHATE
  14. MYCOPHENOLATE [Concomitant]
     Active Substance: MYCOPHENOLIC ACID
  15. SYMBICORT [Concomitant]
     Active Substance: BUDESONIDE\FORMOTEROL FUMARATE DIHYDRATE
  16. ELIQUIS [Concomitant]
     Active Substance: APIXABAN
  17. TRAMADOL. [Concomitant]
     Active Substance: TRAMADOL
  18. VELETRI [Suspect]
     Active Substance: EPOPROSTENOL
     Dosage: 3 NG/KG, PER MIN
     Route: 042
  19. OPSUMIT [Suspect]
     Active Substance: MACITENTAN
     Indication: PULMONARY HYPERTENSION
     Dosage: 10 MG, QD
     Route: 048
     Dates: start: 201808
  20. DIGOX [Concomitant]
     Active Substance: DIGOXIN
  21. DOXYCYCLA [Concomitant]
  22. MUPIROCIN. [Concomitant]
     Active Substance: MUPIROCIN

REACTIONS (17)
  - Vomiting [Unknown]
  - Blood pressure systolic decreased [Not Recovered/Not Resolved]
  - Aspartate aminotransferase increased [Unknown]
  - Alanine aminotransferase increased [Unknown]
  - Oxygen consumption increased [Unknown]
  - Pain in jaw [Unknown]
  - Product dose omission [Unknown]
  - Peripheral swelling [Unknown]
  - Hospitalisation [Unknown]
  - Dyspnoea [Unknown]
  - Dyspnoea exertional [Recovering/Resolving]
  - Dizziness [Unknown]
  - Fatigue [Unknown]
  - Nausea [Unknown]
  - Discomfort [Unknown]
  - Memory impairment [Unknown]
  - Headache [Recovered/Resolved]

NARRATIVE: CASE EVENT DATE: 20180913
